FAERS Safety Report 7811397-4 (Version None)
Quarter: 2011Q4

REPORT INFORMATION
  Report Type: 
  Country: None (occurrence: None)
  Receive Date: 20111013
  Receipt Date: 20111004
  Transmission Date: 20120403
  Serious: Yes (Other)
  Sender: FDA-Public Use
  Company Number: US-PFIZER INC-2011237758

PATIENT
  Sex: Female
  Weight: 49 kg

DRUGS (3)
  1. CALCIUM [Concomitant]
     Indication: SUPPLEMENTATION THERAPY
     Dosage: UNK
  2. LEVOTHYROXINE SODIUM [Concomitant]
     Indication: HYPOTHYROIDISM
     Dosage: 20 UG, UNK
     Route: 048
  3. PREMARIN [Suspect]
     Indication: MENOPAUSE
     Dosage: UNK, 2X/WEEK
     Route: 067
     Dates: start: 20110812

REACTIONS (7)
  - INFLUENZA LIKE ILLNESS [None]
  - FEELING ABNORMAL [None]
  - SLEEP DISORDER [None]
  - MEMORY IMPAIRMENT [None]
  - POST-TRAUMATIC STRESS DISORDER [None]
  - NAUSEA [None]
  - CONDITION AGGRAVATED [None]
